FAERS Safety Report 21267122 (Version 2)
Quarter: 2022Q3

REPORT INFORMATION
  Report Type: Spontaneous
  Country: US (occurrence: US)
  Receive Date: 20220829
  Receipt Date: 20220922
  Transmission Date: 20221026
  Serious: No
  Sender: FDA-Public Use
  Company Number: US-BRISTOL-MYERS SQUIBB COMPANY-2022-094685

PATIENT
  Age: 71 Year
  Sex: Male

DRUGS (1)
  1. APIXABAN [Suspect]
     Active Substance: APIXABAN
     Indication: Cerebrovascular accident prophylaxis
     Dosage: DOSE : UNAVAILABLE;     FREQ : TAKE 1 TABLET BY MOUTH TWICE DAILY
     Route: 048
     Dates: start: 20210519

REACTIONS (1)
  - No adverse event [Unknown]
